FAERS Safety Report 8450877 (Version 4)
Quarter: 2013Q2

REPORT INFORMATION
  Report Type: Spontaneous
  Country: US (occurrence: US)
  Receive Date: 20120309
  Receipt Date: 20130410
  Transmission Date: 20140414
  Serious: Yes (Hospitalization)
  Sender: FDA-Public Use
  Company Number: US-UCBSA-052514

PATIENT
  Age: 18 Year
  Sex: Female
  Weight: 53 kg

DRUGS (17)
  1. CIMZIA [Suspect]
     Indication: CROHN^S DISEASE
     Dosage: GIVEN 2 INDUCTION DOSES (WEEK 0 AND WEEK 2)
     Route: 058
     Dates: start: 20120209, end: 20120301
  2. CALCIUM [Concomitant]
     Dosage: UNKNOWN
  3. MULTIVITAMIN [Concomitant]
     Dosage: UNKNOWN
  4. GASTRITIX [Concomitant]
     Dosage: UNKNOWN
  5. MOTILIUM [Concomitant]
     Indication: IMPAIRED GASTRIC EMPTYING
  6. ATIVAN [Concomitant]
     Dosage: UNKNOWN
  7. VITAMIN D [Concomitant]
     Dosage: UNKNOWN
  8. CALCIUM CARBONATE [Concomitant]
     Dosage: UNKNOWN
  9. TYLENOL [Concomitant]
     Dosage: AS REQUIRED
  10. IMITREX [Concomitant]
     Dosage: 100 MG AS REQUIRED
     Route: 048
  11. RELPAX [Concomitant]
     Indication: MIGRAINE
     Dosage: 40 MG AS REQUIRED
     Dates: start: 20120214
  12. IBUPROFEN [Concomitant]
     Dosage: UNKNOWN
  13. LEVSIN [Concomitant]
     Dosage: UNKNOWN
  14. PENTASA [Concomitant]
     Dosage: DOSE: 4 GM
     Route: 048
     Dates: end: 20120214
  15. SUCRALFATE [Concomitant]
     Dosage: UNKNOWN DOSE
  16. GOLYTELY [Concomitant]
     Indication: COLONOSCOPY
     Dosage: UNKNOWN DOSE
     Dates: start: 201202
  17. RELPAX [Concomitant]
     Dates: start: 20120214

REACTIONS (4)
  - Rhabdomyolysis [Recovering/Resolving]
  - Trigeminal neuralgia [Unknown]
  - Abdominal pain [Recovering/Resolving]
  - Diarrhoea [Recovered/Resolved]
